FAERS Safety Report 9652902 (Version 2)
Quarter: 2014Q1

REPORT INFORMATION
  Report Type: Report from Study
  Country: CA (occurrence: CA)
  Receive Date: 20131029
  Receipt Date: 20140313
  Transmission Date: 20141002
  Serious: Yes (Other)
  Sender: FDA-Public Use
  Company Number: CA-JNJFOC-20131013960

PATIENT
  Sex: Female
  Weight: 100 kg

DRUGS (3)
  1. REMICADE [Suspect]
     Indication: COLITIS ULCERATIVE
     Route: 042
     Dates: start: 201306, end: 20131022
  2. PREDNISONE [Concomitant]
     Route: 048
  3. MEZAVANT [Concomitant]
     Route: 048

REACTIONS (1)
  - Drug ineffective [Unknown]
